FAERS Safety Report 19160705 (Version 3)
Quarter: 2021Q4

REPORT INFORMATION
  Report Type: Report from Study
  Country: US (occurrence: US)
  Receive Date: 20210421
  Receipt Date: 20211220
  Transmission Date: 20220304
  Serious: Yes (Death, Hospitalization, Other)
  Sender: FDA-Public Use
  Company Number: US-ABBVIE-21K-163-3737431-00

PATIENT
  Sex: Male
  Weight: 74.456 kg

DRUGS (10)
  1. VENCLEXTA [Suspect]
     Active Substance: VENETOCLAX
     Indication: Acute myeloid leukaemia
     Dosage: TAKE 2 TABLET(S) BY MOUTH EVERY DAY
     Route: 048
  2. VENCLEXTA [Suspect]
     Active Substance: VENETOCLAX
     Dosage: TAKE 2 TABLET(S) BY MOUTH EVERY DAY
     Route: 048
  3. VENCLEXTA [Suspect]
     Active Substance: VENETOCLAX
     Route: 048
     Dates: start: 20210210, end: 20210216
  4. VENCLEXTA [Suspect]
     Active Substance: VENETOCLAX
     Route: 048
     Dates: start: 20210217, end: 20210223
  5. VENCLEXTA [Suspect]
     Active Substance: VENETOCLAX
     Route: 048
     Dates: start: 20210224, end: 20210302
  6. VENCLEXTA [Suspect]
     Active Substance: VENETOCLAX
     Route: 048
     Dates: start: 20210303, end: 20210309
  7. VENCLEXTA [Suspect]
     Active Substance: VENETOCLAX
     Route: 048
     Dates: start: 20210310
  8. CRESEMBA [Concomitant]
     Active Substance: ISAVUCONAZONIUM SULFATE
     Indication: Acute myeloid leukaemia
  9. LEVAQUIN [Concomitant]
     Active Substance: LEVOFLOXACIN
     Indication: Acute myeloid leukaemia
  10. VALTREX [Concomitant]
     Active Substance: VALACYCLOVIR HYDROCHLORIDE
     Indication: Acute myeloid leukaemia

REACTIONS (6)
  - Death [Fatal]
  - Pericardial effusion [Recovered/Resolved]
  - Platelet count decreased [Not Recovered/Not Resolved]
  - Haemoglobin decreased [Not Recovered/Not Resolved]
  - Off label use [Not Recovered/Not Resolved]
  - Pleural effusion [Unknown]

NARRATIVE: CASE EVENT DATE: 20210101
